FAERS Safety Report 21722195 (Version 1)
Quarter: 2022Q4

REPORT INFORMATION
  Report Type: Spontaneous
  Country: GB (occurrence: GB)
  Receive Date: 20221213
  Receipt Date: 20221213
  Transmission Date: 20230113
  Serious: Yes (Hospitalization, Other)
  Sender: FDA-Public Use
  Company Number: None

PATIENT
  Age: 76 Year
  Sex: Male

DRUGS (4)
  1. FLUOXETINE [Suspect]
     Active Substance: FLUOXETINE HYDROCHLORIDE
     Indication: Product used for unknown indication
     Dosage: 20MG CAPSULES TWO EVERY MORNING
  2. HONEY [Suspect]
     Active Substance: HONEY
     Indication: Product used for unknown indication
     Dosage: APPLY AS DIRECTED
  3. PARAFFIN\WAX, EMULSIFYING [Concomitant]
     Active Substance: PARAFFIN\WAX, EMULSIFYING
     Indication: Product used for unknown indication
     Dosage: APPLY TO SKIN OR USE AS A SOAP SUBSTITUTE
  4. PHENERGAN [Concomitant]
     Active Substance: PROMETHAZINE HYDROCHLORIDE
     Indication: Product used for unknown indication
     Dosage: EVERY NIGHT

REACTIONS (2)
  - Osteoporosis [Unknown]
  - Femoral neck fracture [Unknown]
